FAERS Safety Report 25297581 (Version 2)
Quarter: 2025Q3

REPORT INFORMATION
  Report Type: Report from Study
  Country: US (occurrence: US)
  Receive Date: 20250511
  Receipt Date: 20250809
  Transmission Date: 20251021
  Serious: Yes (Other)
  Sender: ALEXION PHARMACEUTICALS
  Company Number: US-AstraZeneca-CH-00864212A

PATIENT
  Sex: Female

DRUGS (1)
  1. BENRALIZUMAB [Suspect]
     Active Substance: BENRALIZUMAB
     Dosage: 30 MILLIGRAM PER MILLILITRE, Q8W

REACTIONS (5)
  - Illness [Unknown]
  - Asthmatic crisis [Unknown]
  - Gastrointestinal disorder [Unknown]
  - Abdominal hernia [Unknown]
  - Hypophagia [Unknown]
